FAERS Safety Report 20530250 (Version 1)
Quarter: 2022Q1

REPORT INFORMATION
  Report Type: Spontaneous
  Country: US (occurrence: None)
  Receive Date: 20220301
  Receipt Date: 20220301
  Transmission Date: 20220423
  Serious: Yes (Hospitalization)
  Sender: FDA-Public Use
  Company Number: US-Hikma Pharmaceuticals USA Inc.-US-H14001-21-05558

PATIENT
  Age: 41 Year
  Sex: Female

DRUGS (1)
  1. MERCAPTOPURINE [Suspect]
     Active Substance: MERCAPTOPURINE
     Indication: Acute lymphocytic leukaemia
     Dosage: 3 TABLETS ONCE DAILY 4 DAYS A WEEK -150MG AND 125MG 3 DAYS A WEEK; 234 TABLETS DISPENSED
     Route: 048

REACTIONS (1)
  - Cytopenia [Recovered/Resolved]
